FAERS Safety Report 11210557 (Version 1)
Quarter: 2015Q2

REPORT INFORMATION
  Report Type: Spontaneous
  Country: US (occurrence: US)
  Receive Date: 20150622
  Receipt Date: 20150622
  Transmission Date: 20150821
  Serious: Yes (Other)
  Sender: FDA-Public Use
  Company Number: US-ASTELLAS-2015US016460

PATIENT
  Age: 85 Year
  Sex: Male

DRUGS (4)
  1. PRAZOSIN [Concomitant]
     Active Substance: PRAZOSIN
     Indication: BLOOD PRESSURE
     Route: 048
  2. VESICARE [Suspect]
     Active Substance: SOLIFENACIN SUCCINATE
     Indication: PRODUCT USED FOR UNKNOWN INDICATION
     Dosage: 5 MG, ONCE DAILY BY MOUTH
     Route: 048
     Dates: start: 201505, end: 201505
  3. AMITRIPTYLINE [Concomitant]
     Active Substance: AMITRIPTYLINE
     Indication: PAIN
     Route: 048
  4. LISINOPRIL. [Concomitant]
     Active Substance: LISINOPRIL
     Indication: BLOOD PRESSURE
     Route: 048

REACTIONS (4)
  - Bladder pain [Unknown]
  - Diarrhoea [Unknown]
  - Urinary retention [Unknown]
  - Initial insomnia [Unknown]

NARRATIVE: CASE EVENT DATE: 201505
